FAERS Safety Report 4697361-5 (Version None)
Quarter: 2005Q2

REPORT INFORMATION
  Report Type: 
  Country: None (occurrence: None)
  Receive Date: 20050621
  Receipt Date: 20050314
  Transmission Date: 20051028
  Serious: Yes (Hospitalization)
  Sender: FDA-Public Use
  Company Number: 2005S1000133

PATIENT
  Age: 57 Year
  Sex: Female

DRUGS (2)
  1. CUBICIN [Suspect]
     Indication: IMPLANT SITE INFECTION
     Dosage: 6 MG/KG;Q24H;
  2. CUBICIN [Suspect]
     Indication: STAPHYLOCOCCAL INFECTION
     Dosage: 6 MG/KG;Q24H;

REACTIONS (2)
  - POSTOPERATIVE INFECTION [None]
  - STAPHYLOCOCCAL BACTERAEMIA [None]
